FAERS Safety Report 18357238 (Version 2)
Quarter: 2020Q4

REPORT INFORMATION
  Report Type: Spontaneous
  Country: IQ (occurrence: IQ)
  Receive Date: 20201007
  Receipt Date: 20201015
  Transmission Date: 20210114
  Serious: Yes (Life-Threatening)
  Sender: FDA-Public Use
  Company Number: IQ-SA-2020SA269870

PATIENT

DRUGS (2)
  1. CLEXANE [Suspect]
     Active Substance: ENOXAPARIN SODIUM
     Indication: COVID-19
     Dosage: 4000 IU, QD
     Route: 058
     Dates: start: 20200819, end: 20200901
  2. FLENOX [ENOXAPARIN SODIUM] [Concomitant]
     Indication: COVID-19
     Dosage: 4000 IU, QD
     Route: 058

REACTIONS (3)
  - Drug ineffective [Unknown]
  - Product use in unapproved indication [Unknown]
  - Fibrin D dimer increased [Recovered/Resolved]
